FAERS Safety Report 7951688-X (Version None)
Quarter: 2011Q4

REPORT INFORMATION
  Report Type: 
  Country: None (occurrence: None)
  Receive Date: 20111201
  Receipt Date: 20111128
  Transmission Date: 20120403
  Serious: Yes (Disabling, Other)
  Sender: FDA-Public Use
  Company Number: JP-PFIZER INC-2011290117

PATIENT
  Age: 72 Year
  Sex: Female

DRUGS (5)
  1. WARFARIN [Concomitant]
     Dosage: UNK
  2. ASPIRIN [Concomitant]
     Dosage: UNK
  3. LOXONIN [Concomitant]
     Dosage: UNK
  4. LYRICA [Suspect]
     Indication: LUMBAR SPINAL STENOSIS
     Dosage: 25 MG, 1X/DAY
     Route: 048
     Dates: start: 20111121, end: 20111124
  5. PLAVIX [Concomitant]
     Dosage: UNK

REACTIONS (4)
  - MOVEMENT DISORDER [None]
  - OEDEMA PERIPHERAL [None]
  - PAIN IN EXTREMITY [None]
  - SKIN WRINKLING [None]
